FAERS Safety Report 10682304 (Version 1)
Quarter: 2014Q4

REPORT INFORMATION
  Report Type: Spontaneous
  Country: None (occurrence: None)
  Receive Date: 20141229
  Receipt Date: 20141229
  Transmission Date: 20150529
  Serious: Yes (Other)
  Sender: FDA-Public Use
  Company Number: None

PATIENT
  Age: 47 Year
  Sex: Female

DRUGS (1)
  1. DULERA [Suspect]
     Active Substance: FORMOTEROL FUMARATE DIHYDRATE\MOMETASONE FUROATE
     Indication: ASTHMA
     Dosage: 2 PUFFS
     Route: 055

REACTIONS (8)
  - Lung disorder [None]
  - Tremor [None]
  - Wheezing [None]
  - Cough [None]
  - Blood pressure increased [None]
  - Heart rate increased [None]
  - Bronchospasm [None]
  - Burning sensation [None]

NARRATIVE: CASE EVENT DATE: 20141227
